FAERS Safety Report 10734099 (Version 2)
Quarter: 2015Q1

REPORT INFORMATION
  Report Type: Spontaneous
  Country: US (occurrence: US)
  Receive Date: 20150123
  Receipt Date: 20150325
  Transmission Date: 20150721
  Serious: Yes (Death, Hospitalization, Other)
  Sender: FDA-Public Use
  Company Number: US-GLAXOSMITHKLINE INC.-US2015GSK007844

PATIENT
  Sex: Female

DRUGS (2)
  1. FLOLAN [Suspect]
     Active Substance: EPOPROSTENOL SODIUM
     Indication: PULMONARY ARTERIAL HYPERTENSION
     Dosage: 57.5 NG/KG/MIN, CONCENTRATION 75,000 NG/ML, PUMP RATE 4 ML/DAY, VIAL STRENGTH 1.5 MG,  CO
     Route: 042
     Dates: start: 20040108
  2. FLOLAN [Suspect]
     Active Substance: EPOPROSTENOL SODIUM
     Dosage: 57.5 NG/KG/MIN, CONCENTRATION 75,000 NG/ML, PUMP RATE 84 ML/DAY, VIAL STRENGTH 1.5 MG,  CO
     Route: 042
     Dates: start: 20040108

REACTIONS (3)
  - Hospitalisation [Recovered/Resolved]
  - Death [Fatal]
  - Asthenia [Not Recovered/Not Resolved]
